FAERS Safety Report 12943060 (Version 3)
Quarter: 2020Q4

REPORT INFORMATION
  Report Type: Spontaneous
  Country: US (occurrence: US)
  Receive Date: 20161115
  Receipt Date: 20201021
  Transmission Date: 20210113
  Serious: Yes (Hospitalization)
  Sender: FDA-Public Use
  Company Number: US-PFIZER INC-2016524576

PATIENT
  Age: 42 Year
  Sex: Male
  Weight: 95.2 kg

DRUGS (5)
  1. TETRACYCLINE HCL [Suspect]
     Active Substance: TETRACYCLINE HYDROCHLORIDE
     Indication: ASTHMA
     Dosage: 10 MG, 2X/DAY
  2. TETRACYCLINE HCL [Suspect]
     Active Substance: TETRACYCLINE HYDROCHLORIDE
     Indication: RESPIRATORY DISORDER
  3. TETRACYCLINE HCL [Suspect]
     Active Substance: TETRACYCLINE HYDROCHLORIDE
     Indication: NASOPHARYNGITIS
  4. TETRACYCLINE HCL [Suspect]
     Active Substance: TETRACYCLINE HYDROCHLORIDE
     Indication: RESPIRATORY TRACT INFECTION
  5. TETRACYCLINE HCL [Suspect]
     Active Substance: TETRACYCLINE HYDROCHLORIDE
     Indication: PNEUMONIA

REACTIONS (4)
  - Tooth discolouration [Not Recovered/Not Resolved]
  - Tooth injury [Not Recovered/Not Resolved]
  - Tooth disorder [Unknown]
  - Product prescribing error [Unknown]
